FAERS Safety Report 8811276 (Version 1)
Quarter: 2012Q4

REPORT INFORMATION
  Report Type: 
  Country: US (occurrence: None)
  Receive Date: 20120924
  Receipt Date: 20120924
  Transmission Date: 20130627
  Serious: Yes (Hospitalization)
  Sender: FDA-Public Use
  Company Number: None

PATIENT
  Sex: Male
  Weight: 133.8 kg

DRUGS (2)
  1. CYTARABINE [Suspect]
     Dates: start: 20120711
  2. DAUNERUBIEM [Suspect]
     Dates: start: 20120701

REACTIONS (7)
  - Neutropenia [None]
  - Thrombocytopenia [None]
  - Pulmonary alveolar haemorrhage [None]
  - Respiratory failure [None]
  - PCO2 increased [None]
  - Bronchial secretion retention [None]
  - Pneumothorax [None]
